FAERS Safety Report 8613318-3 (Version None)
Quarter: 2012Q3

REPORT INFORMATION
  Report Type: 
  Country: None (occurrence: None)
  Receive Date: 20120822
  Receipt Date: 20120629
  Transmission Date: 20120928
  Serious: No
  Sender: FDA-Public Use
  Company Number: US-009507513-1207USA011086

PATIENT

DRUGS (8)
  1. MIRALAX [Suspect]
     Indication: FAECES HARD
     Dosage: 17 G, HS
     Route: 048
     Dates: start: 20110101
  2. LIPITOR [Concomitant]
     Indication: BLOOD CHOLESTEROL
     Dosage: UNK, UNKNOWN
     Route: 065
  3. LISINOPRIL [Concomitant]
     Indication: PRODUCT USED FOR UNKNOWN INDICATION
     Dosage: UNK, UNKNOWN
     Route: 065
  4. METFORMIN [Concomitant]
     Indication: DIABETES MELLITUS
     Dosage: UNK, UNKNOWN
     Route: 065
  5. ACTOS [Concomitant]
     Indication: DIABETES MELLITUS
     Dosage: UNK, UNKNOWN
     Route: 065
  6. MIRALAX [Suspect]
     Indication: MEDICAL OBSERVATION
  7. BYETTA [Concomitant]
     Indication: DIABETES MELLITUS
     Dosage: UNK, UNKNOWN
     Route: 065
  8. FLOMAX [Concomitant]
     Indication: DYSURIA
     Dosage: UNK, UNKNOWN
     Route: 065

REACTIONS (1)
  - DRUG EFFECT DECREASED [None]
